FAERS Safety Report 18118509 (Version 4)
Quarter: 2020Q3

REPORT INFORMATION
  Report Type: Spontaneous
  Country: US (occurrence: US)
  Receive Date: 20200806
  Receipt Date: 20200914
  Transmission Date: 20201103
  Serious: No
  Sender: FDA-Public Use
  Company Number: US-GLAXOSMITHKLINE-US2020143409

PATIENT
  Sex: Female

DRUGS (1)
  1. BENLYSTA [Suspect]
     Active Substance: BELIMUMAB
     Indication: PRODUCT USED FOR UNKNOWN INDICATION
     Dosage: 200 MG/ML
     Route: 058
     Dates: start: 201911

REACTIONS (5)
  - Asthenia [Unknown]
  - Malaise [Unknown]
  - Pain [Unknown]
  - Product dose omission issue [Unknown]
  - Product complaint [Unknown]
